FAERS Safety Report 9663455 (Version 1)
Quarter: 2013Q4

REPORT INFORMATION
  Report Type: Spontaneous
  Country: US (occurrence: US)
  Receive Date: 20131101
  Receipt Date: 20131101
  Transmission Date: 20140711
  Serious: No
  Sender: FDA-Public Use
  Company Number: US-B.I. PHARMACEUTICALS,INC./RIDGEFIELD-2013-BI-33807BP

PATIENT
  Age: 84 Year
  Sex: Female
  Weight: 57 kg

DRUGS (7)
  1. PRADAXA [Suspect]
     Indication: ATRIAL FIBRILLATION
     Dosage: 300 MG
     Route: 048
     Dates: start: 201301
  2. METOPROLOL [Concomitant]
     Indication: ATRIAL FIBRILLATION
     Dosage: 12.5 MG
     Route: 048
     Dates: start: 201301
  3. NITROFURANTOIN [Concomitant]
     Indication: URINARY TRACT INFECTION
     Dosage: 50 MG
     Route: 048
     Dates: start: 2003
  4. DIGOXIN [Concomitant]
     Indication: ATRIAL FIBRILLATION
     Dosage: 125 MCG
     Route: 048
     Dates: start: 1997
  5. VITAMIN B 12 [Concomitant]
  6. VITAMIN D [Concomitant]
     Route: 048
  7. AREDS EYE SUPPLEMENT [Concomitant]
     Indication: MACULAR DEGENERATION
     Route: 048
     Dates: start: 201309

REACTIONS (2)
  - Oedema peripheral [Not Recovered/Not Resolved]
  - Oedema peripheral [Not Recovered/Not Resolved]
